FAERS Safety Report 4316040-7 (Version None)
Quarter: 2004Q1

REPORT INFORMATION
  Report Type: 
  Country: None (occurrence: None)
  Receive Date: 20040312
  Receipt Date: 20031124
  Transmission Date: 20041129
  Serious: Yes (Hospitalization)
  Sender: FDA-Public Use
  Company Number: PHEH2003US10921

PATIENT
  Age: 47 Year
  Sex: Female

DRUGS (3)
  1. NEORAL [Suspect]
     Indication: RENAL TRANSPLANT
     Dosage: 350 MG, QD
     Route: 048
     Dates: start: 20020705
  2. MYCOPHENOLATE MOFETIL [Suspect]
     Route: 048
     Dates: start: 20030705
  3. PREDNISONE [Suspect]
     Route: 048
     Dates: start: 20030707

REACTIONS (7)
  - ABDOMINAL INJURY [None]
  - ABDOMINAL MASS [None]
  - ADHESION [None]
  - DISEASE RECURRENCE [None]
  - LYMPHOCELE [None]
  - PERINEPHRIC EFFUSION [None]
  - POST PROCEDURAL COMPLICATION [None]
